FAERS Safety Report 8781672 (Version 3)
Quarter: 2014Q2

REPORT INFORMATION
  Report Type: Spontaneous
  Country: US (occurrence: US)
  Receive Date: 20120913
  Receipt Date: 20140401
  Transmission Date: 20141212
  Serious: Yes (Hospitalization)
  Sender: FDA-Public Use
  Company Number: US-BAYER-2012-094928

PATIENT
  Age: 19 Year
  Sex: Female

DRUGS (9)
  1. YAZ [Suspect]
     Dosage: UNK
     Dates: start: 200706
  2. BACTRIM [Concomitant]
     Indication: STAPHYLOCOCCAL INFECTION
  3. LEXAPRO [Concomitant]
     Dosage: 10 MG, UNK
  4. MUPIROCIN [Concomitant]
     Dosage: 2 UNK, UNK
  5. SULFAMETHOXAZOLE W/TRIMETHOPRIM [Concomitant]
  6. BACTRIM DS [Concomitant]
  7. PERCOCET [Concomitant]
  8. COLACE [Concomitant]
  9. ZOFRAN [Concomitant]

REACTIONS (4)
  - Pulmonary embolism [None]
  - Pain [None]
  - Injury [None]
  - Pain [None]
